FAERS Safety Report 6321272-2 (Version None)
Quarter: 2009Q3

REPORT INFORMATION
  Report Type: 
  Country: None (occurrence: None)
  Receive Date: 20090822
  Receipt Date: 20090107
  Transmission Date: 20100115
  Serious: No
  Sender: FDA-Public Use
  Company Number: US-ABBOTT-09P-163-0496325-00

PATIENT
  Sex: Male
  Weight: 73.548 kg

DRUGS (2)
  1. NIASPAN [Suspect]
     Indication: BLOOD CHOLESTEROL
     Dates: start: 20081201
  2. NIASPAN [Suspect]
     Indication: BLOOD TRIGLYCERIDES

REACTIONS (2)
  - FLUSHING [None]
  - HEADACHE [None]
